FAERS Safety Report 9046542 (Version 1)
Quarter: 2013Q1

REPORT INFORMATION
  Report Type: Spontaneous
  Country: US (occurrence: None)
  Receive Date: 20130128
  Receipt Date: 20130128
  Transmission Date: 20140127
  Serious: Yes (Other)
  Sender: FDA-Public Use
  Company Number: None

PATIENT
  Age: 32 Year
  Sex: Female
  Weight: 49.9 kg

DRUGS (1)
  1. CREST PRO-HEALTH COMPLETE ANTICA, CREST [Suspect]
     Indication: DENTAL CARE
     Route: 048
     Dates: start: 20130118, end: 20130120

REACTIONS (3)
  - Hypoaesthesia oral [None]
  - Tongue ulceration [None]
  - Ageusia [None]
